FAERS Safety Report 9451752 (Version 1)
Quarter: 2013Q3

REPORT INFORMATION
  Report Type: Spontaneous
  Country: US (occurrence: US)
  Receive Date: 20130812
  Receipt Date: 20130812
  Transmission Date: 20140515
  Serious: Yes (Hospitalization)
  Sender: FDA-Public Use
  Company Number: US-BIOGENIDEC-2013BI071694

PATIENT
  Sex: Female

DRUGS (4)
  1. TYSABRI [Suspect]
     Indication: MULTIPLE SCLEROSIS
     Route: 042
     Dates: start: 20090702
  2. DEXEDRINE [Concomitant]
     Route: 048
  3. DEXEDRINE [Concomitant]
     Route: 048
  4. DETROL [Concomitant]
     Route: 048

REACTIONS (1)
  - Multiple sclerosis relapse [Unknown]
